FAERS Safety Report 7315314-5 (Version None)
Quarter: 2011Q1

REPORT INFORMATION
  Report Type: 
  Country: None (occurrence: None)
  Receive Date: 20110225
  Receipt Date: 20110216
  Transmission Date: 20110831
  Serious: Yes (Other)
  Sender: FDA-Public Use
  Company Number: PHHY2011FR13531

PATIENT
  Age: 61 Year
  Sex: Female

DRUGS (2)
  1. ANTICOAGULANTS [Concomitant]
     Dosage: UNK
  2. EXTAVIA [Suspect]
     Indication: MULTIPLE SCLEROSIS
     Dosage: 1 ML, QOD
     Dates: start: 20101101

REACTIONS (2)
  - CARDIOMEGALY [None]
  - EMPHYSEMA [None]
